FAERS Safety Report 13021367 (Version 1)
Quarter: 2016Q4

REPORT INFORMATION
  Report Type: Other
  Country: US (occurrence: US)
  Receive Date: 20161213
  Receipt Date: 20161213
  Transmission Date: 20170207
  Serious: Yes (Death, Hospitalization)
  Sender: FDA-Public Use
  Company Number: US-ACTELION-A-CH2016-146440

PATIENT
  Age: 57 Year
  Sex: Female

DRUGS (6)
  1. SILDENAFIL. [Concomitant]
     Active Substance: SILDENAFIL
  2. EPOPROSTENOL SODIUM. [Suspect]
     Active Substance: EPOPROSTENOL SODIUM
     Indication: PULMONARY HYPERTENSION
     Route: 042
  3. FUROSEMIDE. [Concomitant]
     Active Substance: FUROSEMIDE
  4. DOPAMINE [Concomitant]
     Active Substance: DOPAMINE\DOPAMINE HYDROCHLORIDE
  5. MILRINONE [Concomitant]
     Active Substance: MILRINONE
  6. NITRIC OXIDE. [Concomitant]
     Active Substance: NITRIC OXIDE

REACTIONS (10)
  - Blood urea increased [Fatal]
  - Oedema peripheral [Fatal]
  - Oliguria [Fatal]
  - Dyspnoea [Unknown]
  - Acute kidney injury [Fatal]
  - Right ventricular dysfunction [Fatal]
  - Blood creatinine increased [Fatal]
  - Hypoxia [Unknown]
  - Multiple organ dysfunction syndrome [Fatal]
  - Concomitant disease aggravated [Fatal]
